FAERS Safety Report 10705023 (Version 1)
Quarter: 2015Q1

REPORT INFORMATION
  Report Type: Spontaneous
  Country: TR (occurrence: TR)
  Receive Date: 20150112
  Receipt Date: 20150112
  Transmission Date: 20150721
  Serious: Yes (Other)
  Sender: FDA-Public Use
  Company Number: TR-MYLANLABS-2015M1000508

PATIENT

DRUGS (5)
  1. GABAPENTIN. [Suspect]
     Active Substance: GABAPENTIN
     Indication: TRIGEMINAL NEURALGIA
     Route: 065
  2. TRAVOPROST [Concomitant]
     Active Substance: TRAVOPROST
     Indication: EXFOLIATION GLAUCOMA
     Route: 065
  3. CARBAMAZEPINE. [Suspect]
     Active Substance: CARBAMAZEPINE
     Indication: TRIGEMINAL NEURALGIA
     Route: 065
  4. CARTEOLOL [Concomitant]
     Active Substance: CARTEOLOL
     Indication: EXFOLIATION GLAUCOMA
     Route: 065
  5. BRIMONIDINE [Concomitant]
     Active Substance: BRIMONIDINE\BRIMONIDINE TARTRATE
     Indication: EXFOLIATION GLAUCOMA
     Route: 065

REACTIONS (1)
  - Intraocular pressure increased [Unknown]
